FAERS Safety Report 5976517-5 (Version None)
Quarter: 2008Q4

REPORT INFORMATION
  Report Type: 
  Country: None (occurrence: None)
  Receive Date: 20081125
  Receipt Date: 20081111
  Transmission Date: 20090506
  Serious: Yes (Death, Life-Threatening, Other)
  Sender: FDA-Public Use
  Company Number: POMP-1000288

PATIENT
  Age: 7 Month
  Sex: Male
  Weight: 5.5 kg

DRUGS (8)
  1. MYOZYME [Suspect]
     Indication: GLYCOGEN STORAGE DISEASE TYPE II
     Dosage: 100 MG, Q2W, INTRAVENOUS; 100 MG, Q2W, INTRAVENOUS; 20 MG/KG, QW, INTRAVENOUS
     Route: 042
     Dates: start: 20080513, end: 20080805
  2. MYOZYME [Suspect]
     Indication: GLYCOGEN STORAGE DISEASE TYPE II
     Dosage: 100 MG, Q2W, INTRAVENOUS; 100 MG, Q2W, INTRAVENOUS; 20 MG/KG, QW, INTRAVENOUS
     Route: 042
     Dates: start: 20080812, end: 20080816
  3. MYOZYME [Suspect]
     Indication: GLYCOGEN STORAGE DISEASE TYPE II
     Dosage: 100 MG, Q2W, INTRAVENOUS; 100 MG, Q2W, INTRAVENOUS; 20 MG/KG, QW, INTRAVENOUS
     Route: 042
     Dates: start: 20080912
  4. DESLORATADINE (DESLORATADINE) [Concomitant]
  5. ASPIRIN [Concomitant]
  6. CAPTORIL (CAPTORIL) [Concomitant]
  7. CARVEDILOL [Concomitant]
  8. FUROSEMIDE [Concomitant]

REACTIONS (5)
  - CONGESTIVE CARDIOMYOPATHY [None]
  - DRUG INEFFECTIVE [None]
  - MUSCULAR WEAKNESS [None]
  - RESPIRATORY FAILURE [None]
  - RESPIRATORY TRACT INFECTION [None]
